FAERS Safety Report 6733870-2 (Version None)
Quarter: 2010Q2

REPORT INFORMATION
  Report Type: 
  Country: None (occurrence: None)
  Receive Date: 20100520
  Receipt Date: 20100513
  Transmission Date: 20101027
  Serious: Yes (Life-Threatening)
  Sender: FDA-Public Use
  Company Number: JP-ROCHE-686205

PATIENT
  Sex: Male
  Weight: 53.4 kg

DRUGS (20)
  1. ACTEMRA [Suspect]
     Indication: RHEUMATOID ARTHRITIS
     Route: 041
     Dates: start: 20090218, end: 20100118
  2. ACTEMRA [Suspect]
     Dosage: DOSAGE UNCERTAIN
     Route: 041
     Dates: start: 20100301, end: 20100301
  3. ACTEMRA [Suspect]
     Dosage: DOSAGE IS UNCERTAIN.
     Route: 041
     Dates: start: 20100329
  4. PREDONINE [Concomitant]
     Route: 048
  5. RHEUMATREX [Concomitant]
     Route: 048
  6. RIMATIL [Concomitant]
     Route: 048
  7. AZULFIDINE [Concomitant]
     Dosage: ENTERIC COATING DRUG
     Route: 048
  8. NEORAL [Concomitant]
     Route: 048
  9. ROCALTROL [Concomitant]
     Route: 048
  10. TAKEPRON [Concomitant]
     Dosage: DOSE FORM: PERORAL AGENT
     Route: 048
  11. DIOVAN [Concomitant]
     Route: 048
  12. LIPITOR [Concomitant]
     Route: 048
  13. APLACE [Concomitant]
     Route: 048
  14. CYANOCOBALAMIN [Concomitant]
     Route: 048
  15. PRORENAL [Concomitant]
     Route: 048
  16. FOLIC ACID [Concomitant]
     Route: 048
  17. BENET [Concomitant]
     Route: 048
  18. KREMEZIN [Concomitant]
     Route: 048
  19. VOLTAREN [Concomitant]
     Dosage: SUSTAINED RELEASE CAPSULE
     Route: 048
  20. PROGRAF [Concomitant]
     Dosage: DOSE FORM: PERORAL AGENT
     Route: 048

REACTIONS (1)
  - MYOCARDIAL INFARCTION [None]
